FAERS Safety Report 8550189-8 (Version None)
Quarter: 2012Q3

REPORT INFORMATION
  Report Type: 
  Country: None (occurrence: None)
  Receive Date: 20120730
  Receipt Date: 20120719
  Transmission Date: 20120928
  Serious: Yes (Hospitalization)
  Sender: FDA-Public Use
  Company Number: US-ACTELION-A-NJ2012-69149

PATIENT
  Age: 60 Year
  Sex: Female

DRUGS (2)
  1. EPOPROSTENOL SODIUM [Suspect]
     Indication: PULMONARY ARTERIAL HYPERTENSION
     Dosage: 33.5 NG/KG, PER MIN
     Route: 041
     Dates: start: 20120606
  2. COUMADIN [Concomitant]

REACTIONS (1)
  - HERNIA REPAIR [None]
